FAERS Safety Report 4725170-7 (Version None)
Quarter: 2005Q3

REPORT INFORMATION
  Report Type: 
  Country: None (occurrence: None)
  Receive Date: 20050725
  Receipt Date: 20050713
  Transmission Date: 20060218
  Serious: Yes (Other)
  Sender: FDA-Public Use
  Company Number: 216063

PATIENT
  Age: 8 Year
  Sex: Male
  Weight: 17.5 kg

DRUGS (1)
  1. NUTROPIN AQ [Suspect]
     Indication: GROWTH HORMONE DEFICIENCY
     Dosage: 0.8 MG, 6/WEEK, SUBCUTANEOUS
     Route: 058
     Dates: start: 20050117

REACTIONS (4)
  - AGGRESSION [None]
  - ANTISOCIAL BEHAVIOUR [None]
  - BIPOLAR DISORDER [None]
  - DEATH OF PET [None]
